FAERS Safety Report 25573573 (Version 1)
Quarter: 2025Q3

REPORT INFORMATION
  Report Type: Spontaneous
  Country: CN (occurrence: CN)
  Receive Date: 20250717
  Receipt Date: 20250717
  Transmission Date: 20251020
  Serious: Yes (Other)
  Sender: AMGEN
  Company Number: CN-AMGEN-CHNSP2025138721

PATIENT
  Age: 74 Year
  Sex: Female

DRUGS (1)
  1. PROLIA [Suspect]
     Active Substance: DENOSUMAB
     Indication: Osteoporosis
     Dosage: 60 MILLIGRAM, Q6MO
     Route: 058
     Dates: start: 202411

REACTIONS (3)
  - Surgery [Unknown]
  - Spinal osteoarthritis [Not Recovered/Not Resolved]
  - Mental disorder [Recovering/Resolving]

NARRATIVE: CASE EVENT DATE: 20241201
